FAERS Safety Report 9675653 (Version 2)
Quarter: 2014Q3

REPORT INFORMATION
  Report Type: Spontaneous
  Country: US (occurrence: None)
  Receive Date: 20131105
  Receipt Date: 20140718
  Transmission Date: 20150326
  Serious: Yes (Other)
  Sender: FDA-Public Use
  Company Number: 2013-US-002588

PATIENT
  Age: 39 Year
  Sex: Female
  Weight: 61.2 kg

DRUGS (5)
  1. FLONASE (FLUTICASONE PROPIONATE) [Concomitant]
  2. XYREM [Suspect]
     Active Substance: SODIUM OXYBATE
     Indication: HYPNAGOGIC HALLUCINATION
     Route: 048
     Dates: start: 201308, end: 201308
  3. ZYRTEC (CETRIZINE HYDROCHLORIDE) [Concomitant]
  4. XYREM [Suspect]
     Active Substance: SODIUM OXYBATE
     Indication: NARCOLEPSY
     Route: 048
     Dates: start: 201308, end: 201308
  5. SINGULAIR [Concomitant]
     Active Substance: MONTELUKAST SODIUM

REACTIONS (4)
  - Head injury [None]
  - Insomnia [None]
  - Fall [None]
  - Arteriovenous malformation [None]

NARRATIVE: CASE EVENT DATE: 2013
